FAERS Safety Report 14995447 (Version 2)
Quarter: 2018Q3

REPORT INFORMATION
  Report Type: Spontaneous
  Country: US (occurrence: US)
  Receive Date: 20180611
  Receipt Date: 20180704
  Transmission Date: 20181010
  Serious: Yes (Other)
  Sender: FDA-Public Use
  Company Number: US-SA-2018SA151898

PATIENT
  Age: 67 Year
  Sex: Female
  Weight: 58.9 kg

DRUGS (21)
  1. TAXOTERE [Suspect]
     Active Substance: DOCETAXEL
     Indication: BREAST CANCER
     Dosage: 75 MG, Q3W
     Route: 042
     Dates: start: 20160914, end: 20160914
  2. DECADRON A.L. [Concomitant]
  3. TRAZODONE [Concomitant]
     Active Substance: TRAZODONE HYDROCHLORIDE
  4. ADRIAMYCIN [DOXORUBICIN] [Concomitant]
  5. OXYBUTYNIN. [Concomitant]
     Active Substance: OXYBUTYNIN CHLORIDE
  6. ATIVAN [Concomitant]
     Active Substance: LORAZEPAM
  7. ZOFRAN [ONDANSETRON HYDROCHLORIDE] [Concomitant]
  8. PANTOPRAZOLE [Concomitant]
     Active Substance: PANTOPRAZOLE
  9. IPRATROPIUM [Concomitant]
     Active Substance: IPRATROPIUM
  10. EMEND [FOSAPREPITANT MEGLUMINE] [Concomitant]
  11. ALENDRONATE [Concomitant]
     Active Substance: ALENDRONATE SODIUM
     Dosage: UNK
     Dates: start: 20050101
  12. NEOSAR [Concomitant]
     Active Substance: CYCLOPHOSPHAMIDE
  13. VENLAFAXINE [Concomitant]
     Active Substance: VENLAFAXINE HYDROCHLORIDE
  14. NEULASTA [Concomitant]
     Active Substance: PEGFILGRASTIM
  15. LEVOTHYROXINE. [Concomitant]
     Active Substance: LEVOTHYROXINE
     Dosage: UNK
     Dates: start: 20050103
  16. ATROVENT HFA [Concomitant]
     Active Substance: IPRATROPIUM BROMIDE
  17. VITAMIN D [Concomitant]
     Active Substance: CHOLECALCIFEROL
  18. TAXOTERE [Suspect]
     Active Substance: DOCETAXEL
     Dosage: 75 UNK
     Route: 042
     Dates: start: 20161116, end: 20161116
  19. ALBUTEROL [SALBUTAMOL] [Concomitant]
  20. DEMEROL [Concomitant]
     Active Substance: MEPERIDINE HYDROCHLORIDE
  21. LOVASTIN [Concomitant]
     Active Substance: LOVASTATIN

REACTIONS (2)
  - Alopecia [Recovering/Resolving]
  - Psychological trauma [Unknown]

NARRATIVE: CASE EVENT DATE: 201609
